FAERS Safety Report 5892646-9 (Version None)
Quarter: 2008Q3

REPORT INFORMATION
  Report Type: 
  Country: None (occurrence: None)
  Receive Date: 20080919
  Receipt Date: 20080919
  Transmission Date: 20090109
  Serious: Yes (Hospitalization)
  Sender: FDA-Public Use
  Company Number: None

PATIENT
  Sex: Male
  Weight: 53.6 kg

DRUGS (8)
  1. QUETIAPINE FUMARATE [Suspect]
     Indication: DEMENTIA
     Dosage: AS ABOVE
     Dates: start: 20060410
  2. QUETIAPINE FUMARATE [Suspect]
     Indication: PSYCHOTIC DISORDER
     Dosage: AS ABOVE
     Dates: start: 20060410
  3. MEMANTINE HCL [Concomitant]
  4. RAZADYNE [Concomitant]
  5. BENAZAPAPRIL [Concomitant]
  6. SEROQUEL [Concomitant]
  7. METOPROLOL [Concomitant]
  8. MIRTAZAPINE [Concomitant]

REACTIONS (3)
  - FALL [None]
  - SUBDURAL HAEMATOMA [None]
  - SUBDURAL HYGROMA [None]
